FAERS Safety Report 24973691 (Version 3)
Quarter: 2025Q3

REPORT INFORMATION
  Report Type: Spontaneous
  Country: US (occurrence: US)
  Receive Date: 20250217
  Receipt Date: 20250916
  Transmission Date: 20251021
  Serious: No
  Sender: TRAVERE THERAPEUTICS
  Company Number: US-TRAVERE-2025TVT00183

PATIENT
  Age: 45 Year
  Sex: Male

DRUGS (3)
  1. FILSPARI [Suspect]
     Active Substance: SPARSENTAN
     Indication: IgA nephropathy
     Dosage: 1 TABLET, ONCE A DAILY FOR DAYS 1-14
     Route: 048
  2. FILSPARI [Suspect]
     Active Substance: SPARSENTAN
     Route: 048
     Dates: start: 20250117
  3. FILSPARI [Suspect]
     Active Substance: SPARSENTAN
     Dosage: 400 MG EVERY OTHER DAY
     Route: 048

REACTIONS (4)
  - Blood pressure decreased [Unknown]
  - Hepatic enzyme increased [None]
  - Off label use [Unknown]
  - Gastrooesophageal reflux disease [Unknown]
